FAERS Safety Report 8186375-9 (Version None)
Quarter: 2012Q1

REPORT INFORMATION
  Report Type: 
  Country: None (occurrence: None)
  Receive Date: 20120306
  Receipt Date: 20120227
  Transmission Date: 20120608
  Serious: Yes (Hospitalization, Other)
  Sender: FDA-Public Use
  Company Number: US-BAYER-2011-102197

PATIENT
  Age: 20 Year
  Sex: Female
  Weight: 51.701 kg

DRUGS (1)
  1. YAZ [Suspect]
     Dosage: UNK
     Route: 048
     Dates: start: 20080911, end: 20081016

REACTIONS (5)
  - ANHEDONIA [None]
  - PAIN [None]
  - INJURY [None]
  - DEEP VEIN THROMBOSIS [None]
  - EMOTIONAL DISTRESS [None]
